FAERS Safety Report 5747357-7 (Version None)
Quarter: 2008Q2

REPORT INFORMATION
  Report Type: 
  Country: None (occurrence: None)
  Receive Date: 20080523
  Receipt Date: 20080418
  Transmission Date: 20081010
  Serious: No
  Sender: FDA-Public Use
  Company Number: US-BAYER-200819733NA

PATIENT
  Age: 29 Year
  Sex: Female
  Weight: 59 kg

DRUGS (1)
  1. MIRENA [Suspect]
     Indication: CONTRACEPTION
     Route: 015
     Dates: start: 20080214, end: 20080328

REACTIONS (4)
  - ABDOMINAL PAIN LOWER [None]
  - ALOPECIA [None]
  - OEDEMA PERIPHERAL [None]
  - VAGINAL HAEMORRHAGE [None]
